FAERS Safety Report 6011688-6 (Version None)
Quarter: 2008Q4

REPORT INFORMATION
  Report Type: 
  Country: None (occurrence: None)
  Receive Date: 20081218
  Receipt Date: 19880216
  Transmission Date: 20090506
  Serious: Yes (Death)
  Sender: FDA-Public Use
  Company Number: CA-ROCHE-880800006001

PATIENT
  Age: 80 Year
  Sex: Male

DRUGS (5)
  1. ROCEPHIN [Suspect]
     Route: 042
     Dates: start: 19880126, end: 19880204
  2. DIGOXIN [Concomitant]
     Indication: ATRIAL FIBRILLATION
     Route: 042
     Dates: end: 19880204
  3. DILANTIN [Concomitant]
     Indication: CONVULSION PROPHYLAXIS
     Route: 042
     Dates: end: 19880204
  4. FUROSEMIDE [Concomitant]
     Route: 042
     Dates: end: 19880204
  5. RANITIDINE [Concomitant]
     Indication: ULCER
     Route: 042
     Dates: start: 19880126, end: 19880204

REACTIONS (7)
  - BLOOD CREATININE INCREASED [None]
  - BLOOD GLUCOSE INCREASED [None]
  - BLOOD POTASSIUM DECREASED [None]
  - BLOOD UREA INCREASED [None]
  - CARDIOVASCULAR DISORDER [None]
  - DISEASE PROGRESSION [None]
  - RESPIRATORY DISORDER [None]
